FAERS Safety Report 11382145 (Version 1)
Quarter: 2015Q3

REPORT INFORMATION
  Report Type: Spontaneous
  Country: US (occurrence: US)
  Receive Date: 20150811
  Receipt Date: 20150811
  Transmission Date: 20151125
  Serious: No
  Sender: FDA-Public Use
  Company Number: US-ELI_LILLY_AND_COMPANY-US201001005390

PATIENT
  Age: 58 Year
  Sex: Male

DRUGS (6)
  1. CIALIS [Suspect]
     Active Substance: TADALAFIL
     Dosage: 2.5 MG, DAILY (1/D)
     Dates: start: 20100122, end: 20100122
  2. LIPITOR [Concomitant]
     Active Substance: ATORVASTATIN CALCIUM
  3. DIOVAN [Concomitant]
     Active Substance: VALSARTAN
  4. COPAXONE [Concomitant]
     Active Substance: GLATIRAMER ACETATE
     Route: 030
  5. CIALIS [Suspect]
     Active Substance: TADALAFIL
     Indication: ERECTILE DYSFUNCTION
     Dosage: 5 MG, DAILY (1/D)
     Dates: start: 20100119
  6. UROXATRAL [Concomitant]
     Active Substance: ALFUZOSIN HYDROCHLORIDE
     Indication: BLADDER DISORDER

REACTIONS (5)
  - Intentional product misuse [Recovered/Resolved]
  - Fatigue [Not Recovered/Not Resolved]
  - Drug ineffective [Not Recovered/Not Resolved]
  - Disturbance in sexual arousal [Not Recovered/Not Resolved]
  - Penis disorder [Not Recovered/Not Resolved]

NARRATIVE: CASE EVENT DATE: 20100119
